FAERS Safety Report 14134266 (Version 1)
Quarter: 2017Q4

REPORT INFORMATION
  Report Type: Spontaneous
  Country: US (occurrence: US)
  Receive Date: 20171027
  Receipt Date: 20171027
  Transmission Date: 20180321
  Serious: No
  Sender: FDA-Public Use
  Company Number: None

PATIENT
  Age: 33 Year
  Sex: Female
  Weight: 77.85 kg

DRUGS (7)
  1. FLONASE [Concomitant]
     Active Substance: FLUTICASONE PROPIONATE
  2. WELLBUTRIN SR [Concomitant]
     Active Substance: BUPROPION HYDROCHLORIDE
  3. LEVOFLOXACIN 500MG TABLETS WALGREENS [Suspect]
     Active Substance: LEVOFLOXACIN
     Indication: BRONCHITIS
     Dosage: ?          QUANTITY:10 TABLET(S);?
     Route: 048
     Dates: start: 20171020, end: 20171026
  4. ALBUTEROL MDI [Concomitant]
     Active Substance: ALBUTEROL
  5. METOPROLOL SUCCINATE. [Concomitant]
     Active Substance: METOPROLOL SUCCINATE
  6. KLONOPIN [Concomitant]
     Active Substance: CLONAZEPAM
  7. SINGULAIR [Concomitant]
     Active Substance: MONTELUKAST SODIUM

REACTIONS (5)
  - Arthralgia [None]
  - Myalgia [None]
  - Pain in extremity [None]
  - Back pain [None]
  - Pain [None]

NARRATIVE: CASE EVENT DATE: 20171025
